FAERS Safety Report 8330393-4 (Version None)
Quarter: 2012Q2

REPORT INFORMATION
  Report Type: 
  Country: None (occurrence: None)
  Receive Date: 20120502
  Receipt Date: 20120420
  Transmission Date: 20120825
  Serious: Yes (Other)
  Sender: FDA-Public Use
  Company Number: IT-TEVA-335525ISR

PATIENT
  Sex: Female

DRUGS (5)
  1. ASPIRIN [Concomitant]
  2. NIMOTOP [Concomitant]
  3. CANDESARTAN CILEXETIL AND HYDROCHLOROTHIAZIDE [Concomitant]
  4. METFORMIN HCL [Concomitant]
  5. PANTOPRAZOLE [Suspect]
     Dosage: 20 MILLIGRAM;
     Route: 048
     Dates: start: 20120102, end: 20120108

REACTIONS (4)
  - SKIN REACTION [None]
  - HEART RATE INCREASED [None]
  - LIP OEDEMA [None]
  - EYELID OEDEMA [None]
